FAERS Safety Report 12784526 (Version 1)
Quarter: 2016Q3

REPORT INFORMATION
  Report Type: Spontaneous
  Country: FR (occurrence: FR)
  Receive Date: 20160927
  Receipt Date: 20160927
  Transmission Date: 20161109
  Serious: Yes (Other)
  Sender: FDA-Public Use
  Company Number: FR-TEVA-624679ISR

PATIENT
  Sex: Male
  Weight: 92 kg

DRUGS (3)
  1. INIPOMP [Concomitant]
     Active Substance: PANTOPRAZOLE SODIUM
     Indication: HIATUS HERNIA
  2. SALBUTAMOL TEVA 100 MCG/DOSE [Suspect]
     Active Substance: ALBUTEROL
     Indication: ASTHMA
     Route: 055
  3. SYMBICORT [Concomitant]
     Active Substance: BUDESONIDE\FORMOTEROL FUMARATE DIHYDRATE
     Indication: ASTHMA
     Dosage: 1 DOSAGE FORMS DAILY;
     Route: 055

REACTIONS (3)
  - Reaction to drug excipients [Unknown]
  - Asthma [Unknown]
  - Asphyxia [Unknown]
